FAERS Safety Report 8364720-9 (Version None)
Quarter: 2012Q2

REPORT INFORMATION
  Report Type: 
  Country: None (occurrence: None)
  Receive Date: 20120516
  Receipt Date: 20120509
  Transmission Date: 20120825
  Serious: Yes (Other)
  Sender: FDA-Public Use
  Company Number: US-ROCHE-1040241

PATIENT
  Sex: Female
  Weight: 48.578 kg

DRUGS (3)
  1. ACCUTANE [Suspect]
     Dates: start: 19870101, end: 20050101
  2. ACCUTANE [Suspect]
     Dates: start: 19960101, end: 20050401
  3. ACCUTANE [Suspect]
     Indication: KERATOSIS FOLLICULAR
     Dates: start: 19890901, end: 19950501

REACTIONS (7)
  - RHEUMATOID ARTHRITIS [None]
  - INJURY [None]
  - IRRITABLE BOWEL SYNDROME [None]
  - DEPRESSION [None]
  - INFLUENZA [None]
  - COLITIS [None]
  - OSTEOARTHRITIS [None]
